FAERS Safety Report 7366582-5 (Version None)
Quarter: 2011Q1

REPORT INFORMATION
  Report Type: 
  Country: None (occurrence: None)
  Receive Date: 20110322
  Receipt Date: 20110316
  Transmission Date: 20110831
  Serious: Yes (Hospitalization, Other)
  Sender: FDA-Public Use
  Company Number: US-B.I. PHARMACEUTICALS,INC./RIDGEFIELD-2011-BP-08219BP

PATIENT
  Sex: Female

DRUGS (9)
  1. LIPITOR [Concomitant]
     Indication: BLOOD TRIGLYCERIDES INCREASED
  2. PRADAXA [Suspect]
     Indication: ATRIAL FIBRILLATION
     Dosage: 300 MG
     Route: 048
     Dates: start: 20110101, end: 20110303
  3. ASPIRIN [Concomitant]
     Indication: PROPHYLAXIS
  4. TOPAMAX [Concomitant]
     Indication: MIGRAINE
  5. LORANTIDINE [Concomitant]
     Indication: MULTIPLE ALLERGIES
  6. TRAZODONE HCL [Concomitant]
     Indication: ANXIETY
  7. NEXIUM [Concomitant]
     Indication: GASTROOESOPHAGEAL REFLUX DISEASE
  8. VESICARE [Concomitant]
     Indication: URINARY INCONTINENCE
  9. METOPROLOL [Concomitant]
     Indication: ATRIAL FIBRILLATION

REACTIONS (1)
  - TRANSIENT ISCHAEMIC ATTACK [None]
